FAERS Safety Report 6332204-5 (Version None)
Quarter: 2009Q3

REPORT INFORMATION
  Report Type: 
  Country: None (occurrence: None)
  Receive Date: 20090828
  Receipt Date: 20090819
  Transmission Date: 20100115
  Serious: Yes (Other)
  Sender: FDA-Public Use
  Company Number: JP-PFIZER INC-2009260538

PATIENT
  Age: 71 Year

DRUGS (5)
  1. LIPITOR [Suspect]
     Indication: DYSLIPIDAEMIA
     Dosage: 10 MG
     Route: 048
     Dates: start: 20090701, end: 20090803
  2. MYSLEE [Concomitant]
     Dosage: 5 MG, UNK
  3. MUCOSTA [Concomitant]
     Dosage: UNK
     Route: 048
  4. CONSTAN [Concomitant]
     Dosage: UNK
     Route: 048
  5. MAPROTILINE HYDROCHLORIDE [Concomitant]
     Dosage: UNK
     Route: 048

REACTIONS (3)
  - DECREASED APPETITE [None]
  - HEPATIC FUNCTION ABNORMAL [None]
  - PYREXIA [None]
